FAERS Safety Report 19792626 (Version 1)
Quarter: 2021Q3

REPORT INFORMATION
  Report Type: Spontaneous
  Country: SE (occurrence: SE)
  Receive Date: 20210906
  Receipt Date: 20210906
  Transmission Date: 20211014
  Serious: Yes (Other)
  Sender: FDA-Public Use
  Company Number: SE-ACCORD-237383

PATIENT
  Age: 79 Year
  Sex: Male

DRUGS (1)
  1. METHOTREXATE. [Suspect]
     Active Substance: METHOTREXATE
     Indication: POLYARTHRITIS
     Dosage: 20 MG
     Dates: start: 20210618, end: 20210712

REACTIONS (6)
  - Conjunctivitis [Recovering/Resolving]
  - Respiratory distress [Recovering/Resolving]
  - Stomatitis haemorrhagic [Recovering/Resolving]
  - Thrombocytopenia [Recovering/Resolving]
  - Urticaria [Recovering/Resolving]
  - Pharyngitis [Recovering/Resolving]

NARRATIVE: CASE EVENT DATE: 20210712
